FAERS Safety Report 5202399-5 (Version None)
Quarter: 2007Q1

REPORT INFORMATION
  Report Type: 
  Country: None (occurrence: None)
  Receive Date: 20070109
  Receipt Date: 20070103
  Transmission Date: 20070707
  Serious: Yes (Hospitalization)
  Sender: FDA-Public Use
  Company Number: 2006CG01588

PATIENT
  Age: 31 Year
  Sex: Male
  Weight: 70 kg

DRUGS (8)
  1. SYMBICORT [Suspect]
     Indication: ASTHMA
     Dosage: 320/9 ?G, ONE INHALATION BID
     Route: 055
     Dates: start: 20030401
  2. SYMBICORT [Suspect]
     Dosage: 160/4.5 ?G, ONE INHALATION BID
     Route: 055
     Dates: end: 20060901
  3. BECOTIDE [Suspect]
     Indication: ASTHMA
     Dosage: SPORADIC USE
     Route: 055
     Dates: start: 20020101, end: 20030401
  4. CELESTENE [Suspect]
     Indication: PAIN
     Dosage: MANY COURSES OF SHORT LENGTH
     Route: 048
     Dates: start: 20000101, end: 20030101
  5. DESLORATADINE [Concomitant]
     Indication: ASTHMA
     Route: 048
     Dates: start: 20030101
  6. SEREVENT [Concomitant]
     Indication: ASTHMA
     Route: 055
     Dates: start: 20020101, end: 20040101
  7. FORADIL [Concomitant]
     Indication: ASTHMA
     Route: 048
     Dates: start: 20010101, end: 20040101
  8. VENTOLIN [Concomitant]
     Indication: ASTHMA

REACTIONS (1)
  - OSTEONECROSIS [None]
